FAERS Safety Report 12771720 (Version 1)
Quarter: 2016Q3

REPORT INFORMATION
  Report Type: Spontaneous
  Country: US (occurrence: US)
  Receive Date: 20160922
  Receipt Date: 20160922
  Transmission Date: 20161109
  Serious: Yes (Other)
  Sender: FDA-Public Use
  Company Number: US-PFIZER INC-2016442032

PATIENT
  Age: 64 Year
  Sex: Female
  Weight: 109 kg

DRUGS (1)
  1. LYRICA [Suspect]
     Active Substance: PREGABALIN
     Indication: FIBROMYALGIA
     Dosage: 150 MG, 1X/DAY

REACTIONS (2)
  - Nasopharyngitis [Recovering/Resolving]
  - Hypoacusis [Recovering/Resolving]

NARRATIVE: CASE EVENT DATE: 201609
